FAERS Safety Report 19578121 (Version 1)
Quarter: 2021Q3

REPORT INFORMATION
  Report Type: Spontaneous
  Country: US (occurrence: US)
  Receive Date: 20210719
  Receipt Date: 20210719
  Transmission Date: 20211014
  Serious: No
  Sender: FDA-Public Use
  Company Number: US-PAIPHARMA-2021-US-008130

PATIENT
  Age: 66 Year
  Sex: Female
  Weight: 142.88 kg

DRUGS (10)
  1. INSULIN [Concomitant]
     Active Substance: INSULIN NOS
  2. PLAVIX [Concomitant]
     Active Substance: CLOPIDOGREL BISULFATE
  3. PROAIR HFA [Concomitant]
     Active Substance: ALBUTEROL SULFATE
  4. ASPIRIN. [Concomitant]
     Active Substance: ASPIRIN
  5. WATER PILL [Concomitant]
     Active Substance: UNSPECIFIED INGREDIENT
  6. BP PILL [Concomitant]
  7. POTASSIUM CHLORIDE ORAL SOLUTION, USP 10% [Suspect]
     Active Substance: POTASSIUM CHLORIDE
     Indication: HYPOKALAEMIA
     Dosage: 1.5 TSP DAILY
     Route: 048
     Dates: start: 20210407
  8. THYROID MEDICATION [Concomitant]
     Active Substance: UNSPECIFIED INGREDIENT
  9. HEART MEDICINE [Concomitant]
     Active Substance: UNSPECIFIED INGREDIENT
  10. SIMBACORT [Concomitant]

REACTIONS (2)
  - Muscle spasms [Not Recovered/Not Resolved]
  - Condition aggravated [Not Recovered/Not Resolved]

NARRATIVE: CASE EVENT DATE: 20210415
